FAERS Safety Report 7503259-7 (Version None)
Quarter: 2011Q2

REPORT INFORMATION
  Report Type: 
  Country: None (occurrence: None)
  Receive Date: 20110525
  Receipt Date: 20110124
  Transmission Date: 20111010
  Serious: No
  Sender: FDA-Public Use
  Company Number: A0908629A

PATIENT
  Age: 68 Year
  Sex: Female

DRUGS (2)
  1. SYNTHROID [Concomitant]
  2. BACTROBAN [Suspect]
     Indication: SKIN INFECTION
     Dosage: 1APP TWICE PER DAY
     Route: 061
     Dates: start: 20110121, end: 20110124

REACTIONS (1)
  - DRUG INEFFECTIVE [None]
